FAERS Safety Report 8891408 (Version 1)
Quarter: 2012Q4

REPORT INFORMATION
  Report Type: Spontaneous
  Country: US (occurrence: None)
  Receive Date: 20121105
  Receipt Date: 20121105
  Transmission Date: 20130627
  Serious: Yes (Hospitalization)
  Sender: FDA-Public Use
  Company Number: None

PATIENT
  Age: 69 Year
  Sex: Male
  Weight: 100.2 kg

DRUGS (2)
  1. FENTANYL [Suspect]
     Indication: PAIN
     Dosage: Dose: 1 Unite; Route: Top
     Route: 061
     Dates: end: 20121026
  2. ACETAMINOPHEN/ HYDROCODONE [Suspect]
     Indication: PAIN
     Dosage: Dose: 1 TAB
     Route: 048
     Dates: end: 20121026

REACTIONS (3)
  - Mental status changes [None]
  - Dizziness [None]
  - Fall [None]
